FAERS Safety Report 11985583 (Version 1)
Quarter: 2016Q1

REPORT INFORMATION
  Report Type: Spontaneous
  Country: US (occurrence: US)
  Receive Date: 20160201
  Receipt Date: 20160201
  Transmission Date: 20160526
  Serious: No
  Sender: FDA-Public Use
  Company Number: US-009507513-1601USA009492

PATIENT
  Age: 88 Year
  Sex: Male

DRUGS (13)
  1. METROPOLYN [Concomitant]
  2. OXYCODONE [Concomitant]
     Active Substance: OXYCODONE
  3. BELSOMRA [Suspect]
     Active Substance: SUVOREXANT
     Indication: INSOMNIA
     Dosage: 10 MG TABLET TAKEN AT BED TIME
     Route: 048
     Dates: start: 20160118
  4. FINASTERIDE. [Concomitant]
     Active Substance: FINASTERIDE
  5. TEMAZEPAM. [Concomitant]
     Active Substance: TEMAZEPAM
  6. VITAMIN D3 WILD [Concomitant]
  7. DAILY [Concomitant]
     Active Substance: ETHINYL ESTRADIOL\LEVONORGESTREL
     Dosage: ESSTENTIAL
  8. TAMSULOSIN HYDROCHLORIDE. [Concomitant]
     Active Substance: TAMSULOSIN HYDROCHLORIDE
  9. BENADRYL [Concomitant]
     Active Substance: DIPHENHYDRAMINE HYDROCHLORIDE
     Indication: SLEEP DISORDER
  10. VITAMIN B 12 LICHTENSTEIN [Concomitant]
  11. PRAVASTATIN [Concomitant]
     Active Substance: PRAVASTATIN\PRAVASTATIN SODIUM
  12. MELATONIN [Concomitant]
     Active Substance: MELATONIN
  13. GABAPENTIN. [Concomitant]
     Active Substance: GABAPENTIN

REACTIONS (2)
  - Muscle twitching [Not Recovered/Not Resolved]
  - Drug ineffective [Not Recovered/Not Resolved]

NARRATIVE: CASE EVENT DATE: 20160118
